FAERS Safety Report 7228355-3 (Version None)
Quarter: 2011Q1

REPORT INFORMATION
  Report Type: 
  Country: None (occurrence: None)
  Receive Date: 20110114
  Receipt Date: 20110112
  Transmission Date: 20110831
  Serious: Yes (Death)
  Sender: FDA-Public Use
  Company Number: GR-PFIZER INC-2011007411

PATIENT
  Age: 85 Year
  Sex: Male
  Weight: 46 kg

DRUGS (7)
  1. LEVOFLOXACIN [Suspect]
     Indication: ABDOMINAL INFECTION
     Dosage: 500 MG, 2X/DAY
     Route: 042
     Dates: start: 20090530, end: 20090602
  2. MUCOSOLVAN [Suspect]
     Dosage: 1 UNK, 2X/DAY
     Route: 042
     Dates: start: 20090530, end: 20090609
  3. PIPERACILLIN AND TAZOBACTAM [Suspect]
     Indication: ABDOMINAL INFECTION
     Dosage: 4.5 G, 3X/DAY
     Route: 042
     Dates: start: 20090530, end: 20090609
  4. INNOHEP [Suspect]
     Dosage: 0.35 UNK, 1X/DAY
     Route: 058
     Dates: start: 20090530, end: 20090609
  5. METRONIDAZOLE [Suspect]
     Dosage: 500 MG, 3X/DAY
     Route: 042
     Dates: start: 20090530, end: 20090605
  6. PENTAZOL [Suspect]
     Dosage: 1 UNK, 2X/DAY
     Route: 042
     Dates: start: 20090530, end: 20090609
  7. ATROVENT [Suspect]
     Dosage: 1 UNK, 3X/DAY
     Route: 045
     Dates: start: 20090530, end: 20090609

REACTIONS (1)
  - DEATH [None]
